FAERS Safety Report 5685331-X (Version None)
Quarter: 2008Q1

REPORT INFORMATION
  Report Type: 
  Country: None (occurrence: None)
  Receive Date: 20080328
  Receipt Date: 20080317
  Transmission Date: 20080703
  Serious: Yes (Other)
  Sender: FDA-Public Use
  Company Number: CA-PFIZER INC-2008024588

PATIENT
  Age: 11 Year
  Sex: Male

DRUGS (9)
  1. FLUCONAZOLE [Suspect]
     Indication: CANDIDIASIS
     Route: 042
  2. MEROPENEM [Concomitant]
  3. FUROSEMIDE [Concomitant]
  4. KETAMINE HCL [Concomitant]
  5. MIDAZOLAM HCL [Concomitant]
  6. LORAZEPAM [Concomitant]
  7. CHLORAL HYDRATE [Concomitant]
  8. ACETAMINOPHEN [Concomitant]
  9. IBUPROFEN [Concomitant]

REACTIONS (1)
  - VENTRICULAR TACHYCARDIA [None]
